FAERS Safety Report 13371028 (Version 1)
Quarter: 2017Q1

REPORT INFORMATION
  Report Type: Spontaneous
  Country: RO (occurrence: RO)
  Receive Date: 20170324
  Receipt Date: 20170324
  Transmission Date: 20170429
  Serious: Yes (Death, Life-Threatening, Hospitalization)
  Sender: FDA-Public Use
  Company Number: RO-ABBVIE-17K-135-1920824-00

PATIENT
  Age: 55 Year
  Sex: Male
  Weight: 116 kg

DRUGS (5)
  1. INSULIN [Concomitant]
     Active Substance: INSULIN NOS
     Indication: DIABETES MELLITUS
     Route: 058
     Dates: start: 20161021, end: 20170320
  2. OLICARD [Concomitant]
     Active Substance: ISOSORBIDE MONONITRATE
     Indication: INFARCTION
     Route: 048
     Dates: start: 20140529, end: 20170320
  3. CARVEDILOL. [Concomitant]
     Active Substance: CARVEDILOL
     Indication: INFARCTION
     Route: 048
     Dates: start: 20100830, end: 20170320
  4. DIGOXIN. [Concomitant]
     Active Substance: DIGOXIN
     Indication: INFARCTION
     Route: 048
     Dates: start: 20100830, end: 20170320
  5. HUMIRA [Suspect]
     Active Substance: ADALIMUMAB
     Indication: ANKYLOSING SPONDYLITIS
     Route: 058
     Dates: start: 20141015

REACTIONS (3)
  - Cardio-respiratory arrest [Fatal]
  - Spinal fracture [Not Recovered/Not Resolved]
  - Fall [Not Recovered/Not Resolved]

NARRATIVE: CASE EVENT DATE: 201703
